FAERS Safety Report 8904327 (Version 1)
Quarter: 2012Q4

REPORT INFORMATION
  Report Type: 
  Country: IT (occurrence: IT)
  Receive Date: 20121112
  Receipt Date: 20121112
  Transmission Date: 20130627
  Serious: Yes (Other)
  Sender: FDA-Public Use
  Company Number: IT-PFIZER INC-2012282465

PATIENT
  Age: 84 Year
  Sex: Female

DRUGS (6)
  1. TORVAST [Suspect]
     Indication: DYSLIPIDEMIA
     Dosage: 10 mg, daily
     Route: 048
     Dates: start: 20120502, end: 20121001
  2. CLOPIDOGREL [Concomitant]
     Dosage: UNK
  3. FUROSEMIDE [Concomitant]
     Dosage: UNK
  4. PANTOPRAZOLE SODIUM [Concomitant]
     Dosage: UNK
  5. HYDROCHLOROTHIAZIDE/OLMESARTAN MEDOXOMIL [Concomitant]
     Dosage: UNK
  6. ALLOPURINOL [Concomitant]
     Dosage: UNK

REACTIONS (2)
  - Blood creatine phosphokinase increased [Unknown]
  - Blood lactate dehydrogenase increased [Unknown]
